FAERS Safety Report 20864444 (Version 1)
Quarter: 2022Q2

REPORT INFORMATION
  Report Type: Spontaneous
  Country: FR (occurrence: FR)
  Receive Date: 20220524
  Receipt Date: 20220524
  Transmission Date: 20220721
  Serious: Yes (Hospitalization, Other)
  Sender: FDA-Public Use
  Company Number: FR-SUN PHARMACEUTICAL INDUSTRIES LTD-2022RR-337880

PATIENT
  Age: 59 Year
  Sex: Female

DRUGS (3)
  1. TEMOZOLOMIDE [Suspect]
     Active Substance: TEMOZOLOMIDE
     Indication: Glioblastoma
     Dosage: 150-200 MG/M2
     Route: 065
  2. TEMOZOLOMIDE [Suspect]
     Active Substance: TEMOZOLOMIDE
     Dosage: 75 MILLIGRAM/SQ. METER, DAILY
     Route: 065
  3. METHYLPREDNISOLONE [Suspect]
     Active Substance: METHYLPREDNISOLONE
     Indication: Glioblastoma
     Dosage: 16 MILLIGRAM, DAILY
     Route: 048

REACTIONS (6)
  - Progressive multifocal leukoencephalopathy [Unknown]
  - Therapy partial responder [Unknown]
  - Neurological decompensation [Unknown]
  - Behaviour disorder [Unknown]
  - Lymphopenia [Unknown]
  - Vitamin B12 decreased [Unknown]
